FAERS Safety Report 14101721 (Version 1)
Quarter: 2017Q4

REPORT INFORMATION
  Report Type: Spontaneous
  Country: CN (occurrence: CN)
  Receive Date: 20171018
  Receipt Date: 20171018
  Transmission Date: 20180321
  Serious: Yes (Hospitalization, Other)
  Sender: FDA-Public Use
  Company Number: CN-ALEMBIC PHARMACUETICALS LIMITED-2017SCAL000811

PATIENT

DRUGS (2)
  1. VENLAFAXINE [Suspect]
     Active Substance: VENLAFAXINE HYDROCHLORIDE
     Indication: SOMATIC SYMPTOM DISORDER
     Dosage: 225 MG, QD
  2. PALIPERIDONE. [Suspect]
     Active Substance: PALIPERIDONE
     Indication: SOMATIC SYMPTOM DISORDER
     Dosage: 3 MG, QD

REACTIONS (3)
  - Drug interaction [Recovering/Resolving]
  - Rash [Recovering/Resolving]
  - Dystonia [Recovering/Resolving]
